FAERS Safety Report 5195069-3 (Version None)
Quarter: 2006Q4

REPORT INFORMATION
  Report Type: 
  Country: None (occurrence: None)
  Receive Date: 20061229
  Receipt Date: 20061221
  Transmission Date: 20070319
  Serious: Yes (Death, Hospitalization)
  Sender: FDA-Public Use
  Company Number: NO-JNJFOC-20061200321

PATIENT
  Sex: Female

DRUGS (9)
  1. CAELYX [Suspect]
     Route: 042
  2. CAELYX [Suspect]
     Route: 042
  3. CAELYX [Suspect]
     Route: 042
  4. CAELYX [Suspect]
     Indication: OVARIAN CANCER
     Route: 042
  5. CARBOPLATIN [Suspect]
     Route: 042
  6. CARBOPLATIN [Suspect]
     Route: 042
  7. CARBOPLATIN [Suspect]
     Route: 042
  8. CARBOPLATIN [Suspect]
     Indication: OVARIAN CANCER
     Route: 042
  9. PARALGINE FORTE [Concomitant]
     Indication: PAIN

REACTIONS (2)
  - CEREBRAL HAEMORRHAGE [None]
  - THROMBOCYTOPENIA [None]
